FAERS Safety Report 4700608-X (Version None)
Quarter: 2005Q2

REPORT INFORMATION
  Report Type: 
  Country: None (occurrence: None)
  Receive Date: 20050627
  Receipt Date: 20050601
  Transmission Date: 20051028
  Serious: Yes (Hospitalization, Other)
  Sender: FDA-Public Use
  Company Number: 200515139GDDC

PATIENT
  Age: 54 Year
  Sex: Female

DRUGS (8)
  1. ARAVA [Suspect]
     Route: 048
     Dates: start: 20050426, end: 20050511
  2. MELOXICAM [Concomitant]
     Indication: SPINAL OSTEOARTHRITIS
     Route: 048
     Dates: start: 20050417, end: 20050510
  3. CONTROLOC [Concomitant]
     Route: 048
     Dates: start: 20050417
  4. KALIPOZ PROLONGATUM [Concomitant]
     Indication: HYPERTENSION
     Route: 048
  5. ALFADIOL [Concomitant]
     Indication: OSTEOPOROSIS
     Route: 048
     Dates: start: 20050418
  6. CALPEROS [Concomitant]
     Indication: OSTEOPOROSIS
     Route: 048
     Dates: start: 20050418
  7. DICLOFENAC SODIUM [Concomitant]
     Route: 048
     Dates: start: 20050428, end: 20050520
  8. VENESCIN [Concomitant]
     Dosage: DOSE: 3 X 2
     Route: 048
     Dates: start: 20050428, end: 20050520

REACTIONS (5)
  - ARTHRALGIA [None]
  - BLOOD CREATINE PHOSPHOKINASE INCREASED [None]
  - JOINT STIFFNESS [None]
  - MYALGIA [None]
  - MYOSITIS [None]
